FAERS Safety Report 6022610-0 (Version None)
Quarter: 2008Q4

REPORT INFORMATION
  Report Type: 
  Country: None (occurrence: None)
  Receive Date: 20081230
  Receipt Date: 20081218
  Transmission Date: 20090506
  Serious: Yes (Other)
  Sender: FDA-Public Use
  Company Number: DE-PURDUE-DEU_2008_0004921

PATIENT
  Age: 38 Year
  Sex: Female

DRUGS (2)
  1. MORPHINE SULFATE [Suspect]
     Indication: NEUROPATHY PERIPHERAL
     Dosage: 5 MG, UNK
     Route: 042
  2. MORPHINE SULFATE [Suspect]
     Dosage: 3 MG, UNK
     Route: 042

REACTIONS (1)
  - COMA [None]
